FAERS Safety Report 5211739-2 (Version None)
Quarter: 2007Q1

REPORT INFORMATION
  Report Type: 
  Country: None (occurrence: None)
  Receive Date: 20070116
  Receipt Date: 20070102
  Transmission Date: 20070707
  Serious: Yes (Other)
  Sender: FDA-Public Use
  Company Number: 07011974

PATIENT
  Age: 27 Month
  Sex: Female

DRUGS (1)
  1. PARACETAMOL [Suspect]
     Dosage: ORAL

REACTIONS (5)
  - COMA [None]
  - METABOLIC ACIDOSIS [None]
  - OVERDOSE [None]
  - SOMNOLENCE [None]
  - VOMITING [None]
